FAERS Safety Report 25505356 (Version 1)
Quarter: 2025Q3

REPORT INFORMATION
  Report Type: Spontaneous
  Country: EU (occurrence: EU)
  Receive Date: 20250702
  Receipt Date: 20250702
  Transmission Date: 20251020
  Serious: Yes (Other)
  Sender: TAKEDA
  Company Number: EU-TAKEDA-2025TUS059247

PATIENT
  Age: 54 Year
  Sex: Male

DRUGS (3)
  1. HUMAN IMMUNOGLOBULIN G [Suspect]
     Active Substance: HUMAN IMMUNOGLOBULIN G
     Indication: Blood immunoglobulin G
  2. RITUXIMAB [Concomitant]
     Active Substance: RITUXIMAB
  3. TOCILIZUMAB [Concomitant]
     Active Substance: TOCILIZUMAB

REACTIONS (1)
  - Drug ineffective [Unknown]
